FAERS Safety Report 6455723-X (Version None)
Quarter: 2009Q4

REPORT INFORMATION
  Report Type: 
  Country: None (occurrence: None)
  Receive Date: 20091125
  Receipt Date: 20091109
  Transmission Date: 20100525
  Serious: No
  Sender: FDA-Public Use
  Company Number: US-ABBOTT-09P-163-0607884-00

PATIENT
  Sex: Male
  Weight: 122.58 kg

DRUGS (1)
  1. SIMCOR [Suspect]
     Indication: HYPERCHOLESTEROLAEMIA
     Dosage: 500/20 MILLIGRAMS, AT BEDTIME
     Dates: start: 20091001, end: 20091109

REACTIONS (1)
  - PAIN [None]
